FAERS Safety Report 20884211 (Version 1)
Quarter: 2022Q2

REPORT INFORMATION
  Report Type: Report from Study
  Country: AU (occurrence: AU)
  Receive Date: 20220527
  Receipt Date: 20220527
  Transmission Date: 20220721
  Serious: Yes (Hospitalization)
  Sender: FDA-Public Use
  Company Number: AU-PFIZER INC-202200049386

PATIENT
  Age: 56 Year
  Sex: Male

DRUGS (18)
  1. IRINOTECAN HYDROCHLORIDE [Suspect]
     Active Substance: IRINOTECAN HYDROCHLORIDE
     Indication: Adenocarcinoma pancreas
     Dosage: DAY 1 AND 15 OF EACH 28 DAY CYCLE (150 MG/M2,1 IN 2 WK)
     Route: 042
     Dates: start: 20211217
  2. FLUOROURACIL [Suspect]
     Active Substance: FLUOROURACIL
     Indication: Adenocarcinoma pancreas
     Dosage: DAYS 1,3,15, AND 17 OF EACH 28 DAY CYCLE (2400 MG/M2)
     Route: 042
     Dates: start: 20211217
  3. OXALIPLATIN [Suspect]
     Active Substance: OXALIPLATIN
     Indication: Adenocarcinoma pancreas
     Dosage: DAY 1 AND 15 OF EACH 28 DAY CYCLE (85 MG/M2,1 IN 2 WK)
     Route: 042
     Dates: start: 20211217
  4. LEUCOVORIN CALCIUM [Suspect]
     Active Substance: LEUCOVORIN CALCIUM
     Indication: Adenocarcinoma pancreas
     Dosage: DAY 1 AND 15 OF EACH 28 DAY CYCLE (400 MG/M2,1 IN 2 WK)
     Route: 042
     Dates: start: 20211217
  5. GILORALIMAB [Suspect]
     Active Substance: GILORALIMAB
     Indication: Adenocarcinoma pancreas
     Dosage: DAY 3 OF EACH 28 DAY CYCLE (0.3 MG/KG,1 IN 4 WK)
     Route: 042
     Dates: start: 20211220
  6. BUDIGALIMAB [Suspect]
     Active Substance: BUDIGALIMAB
     Indication: Adenocarcinoma pancreas
     Dosage: DAY 3 OF EACH 28 DAY CYCLE (500 MG,1 IN 4 WK)
     Route: 042
     Dates: start: 20211220
  7. CREON [Concomitant]
     Active Substance: PANCRELIPASE AMYLASE\PANCRELIPASE LIPASE\PANCRELIPASE PROTEASE
     Indication: Prophylaxis
     Dosage: 6 TABLETS (2 TABLET, 3X/DAY)
     Route: 048
     Dates: start: 20211124
  8. OXYCODONE [Concomitant]
     Active Substance: OXYCODONE
     Indication: Cancer pain
     Dosage: 15 MG (5 MG, 3X/DAY)
     Route: 048
     Dates: start: 20211202
  9. PANTOPRAZOLE [Concomitant]
     Active Substance: PANTOPRAZOLE
     Indication: Prophylaxis
     Dosage: 40 MG, 1 IN 1 EVERY OTHER DAY
     Route: 048
     Dates: start: 20211202
  10. ACETAMINOPHEN [Concomitant]
     Active Substance: ACETAMINOPHEN
     Indication: Cancer pain
     Dosage: 1 GM,1 IN 1 AS REQUIRED
     Route: 048
     Dates: start: 20211202
  11. ENSURE [Concomitant]
     Active Substance: AMINO ACIDS\DEXTROSE\ELECTROLYTES NOS\SOYBEAN OIL\VITAMINS
     Indication: Nutritional supplementation
     Dosage: 40 ML, 1 IN1 AS REQUIRED
     Route: 048
     Dates: start: 20211202
  12. METOCLOPRAMIDE [Concomitant]
     Active Substance: METOCLOPRAMIDE
     Indication: Prophylaxis of nausea and vomiting
     Dosage: 10 MG, 1 IN1 AS REQUIRED
     Route: 048
     Dates: start: 20211220
  13. DEXAMETHASONE [Concomitant]
     Active Substance: DEXAMETHASONE
     Indication: Prophylaxis of nausea and vomiting
     Dosage: 10 MG, 1 IN 2 WK
     Route: 048
     Dates: start: 20211217
  14. DEXAMETHASONE [Concomitant]
     Active Substance: DEXAMETHASONE
     Dosage: 4 MG
     Route: 048
     Dates: start: 20211220
  15. NETUPITANT\PALONOSETRON [Concomitant]
     Active Substance: NETUPITANT\PALONOSETRON
     Indication: Prophylaxis of nausea and vomiting
     Dosage: [NETUPITANT 300 MG]/ [PALONOSETRON 0.5 MG], 1 IN 2 WK
     Route: 042
     Dates: start: 20211217
  16. LIPEGFILGRASTIM [Concomitant]
     Active Substance: LIPEGFILGRASTIM
     Indication: Prophylaxis
     Dosage: 6 MG, 1 IN 2 WK
     Route: 058
     Dates: start: 20211220
  17. ENOXAPARIN SODIUM [Concomitant]
     Active Substance: ENOXAPARIN SODIUM
     Indication: Pulmonary embolism
     Dosage: UNK
  18. ENOXAPARIN SODIUM [Concomitant]
     Active Substance: ENOXAPARIN SODIUM
     Indication: Portal vein thrombosis

REACTIONS (2)
  - Clostridium difficile colitis [Recovered/Resolved]
  - Catheter site infection [Recovered/Resolved]

NARRATIVE: CASE EVENT DATE: 20211223
